FAERS Safety Report 9036017 (Version 1)
Quarter: 2013Q1

REPORT INFORMATION
  Report Type: Report from Study
  Country: US (occurrence: US)
  Receive Date: 20130129
  Receipt Date: 20130129
  Transmission Date: 20140127
  Serious: No
  Sender: FDA-Public Use
  Company Number: US-ABBOTT-12P-163-0906400-00

PATIENT
  Age: 65 Year
  Sex: Female

DRUGS (5)
  1. HUMIRA 40 MG/0.8 ML PEN [Suspect]
     Indication: PSORIATIC ARTHROPATHY
     Dates: start: 20111207
  2. KLOR-CON [Concomitant]
     Indication: ILL-DEFINED DISORDER
  3. LASIX [Concomitant]
     Indication: DIURETIC THERAPY
  4. DICLOFENAC [Concomitant]
     Indication: ARTHRITIS
  5. LISINOPRIL [Concomitant]
     Indication: HYPERTENSION

REACTIONS (1)
  - Fatigue [Not Recovered/Not Resolved]
